FAERS Safety Report 5328949-6 (Version None)
Quarter: 2007Q2

REPORT INFORMATION
  Report Type: 
  Country: None (occurrence: None)
  Receive Date: 20070518
  Receipt Date: 20070507
  Transmission Date: 20071010
  Serious: Yes (Hospitalization)
  Sender: FDA-Public Use
  Company Number: US-AMGEN-STX222335

PATIENT
  Sex: Female
  Weight: 77.2 kg

DRUGS (2)
  1. ENBREL [Suspect]
     Indication: RHEUMATOID ARTHRITIS
     Route: 058
     Dates: start: 20051129
  2. SULFASALAZINE [Concomitant]
     Dates: start: 20050801

REACTIONS (2)
  - CHOLELITHIASIS [None]
  - MENORRHAGIA [None]
